FAERS Safety Report 20443469 (Version 2)
Quarter: 2022Q1

REPORT INFORMATION
  Report Type: Spontaneous
  Country: KR (occurrence: KR)
  Receive Date: 20220208
  Receipt Date: 20220225
  Transmission Date: 20220423
  Serious: Yes (Hospitalization, Other)
  Sender: FDA-Public Use
  Company Number: KR-MACLEODS PHARMACEUTICALS US LTD-MAC2022034299

PATIENT

DRUGS (2)
  1. TENOFOVIR [Suspect]
     Active Substance: TENOFOVIR
     Indication: Hepatitis B
     Dosage: UNK
     Route: 065
  2. BETAMETHASONE [Suspect]
     Active Substance: BETAMETHASONE
     Indication: Herpes simplex
     Dosage: UNK, ON THE LIPS
     Route: 065

REACTIONS (4)
  - Familial periodic paralysis [Recovered/Resolved]
  - Metabolic acidosis [Unknown]
  - Renal tubular injury [Recovered/Resolved]
  - Hypophosphataemia [Recovered/Resolved]
